FAERS Safety Report 14870870 (Version 1)
Quarter: 2018Q2

REPORT INFORMATION
  Report Type: Spontaneous
  Country: US (occurrence: US)
  Receive Date: 20180424
  Receipt Date: 20180424
  Transmission Date: 20180711
  Serious: Yes (Hospitalization)
  Sender: FDA-Public Use
  Company Number: None

PATIENT
  Sex: Male

DRUGS (11)
  1. LISINOPRIL. [Concomitant]
     Active Substance: LISINOPRIL
  2. AZITHROMYCIN ANHYDROUS. [Concomitant]
     Active Substance: AZITHROMYCIN ANHYDROUS
  3. DOXYCYCL [Concomitant]
  4. ENBREL [Suspect]
     Active Substance: ETANERCEPT
     Indication: RHEUMATOID ARTHRITIS
     Route: 058
     Dates: start: 20161223
  5. ENBREL [Suspect]
     Active Substance: ETANERCEPT
     Indication: RHEUMATOID ARTHRITIS
     Route: 058
     Dates: start: 20161223
  6. CEFUROXIME. [Concomitant]
     Active Substance: CEFUROXIME
  7. LITHIUM. [Concomitant]
     Active Substance: LITHIUM
  8. COLCHICINE. [Concomitant]
     Active Substance: COLCHICINE
  9. METHYLPRED [Concomitant]
     Active Substance: METHYLPREDNISOLONE
  10. OXYCOD [Concomitant]
  11. ALLOPURINOL. [Concomitant]
     Active Substance: ALLOPURINOL

REACTIONS (4)
  - Gout [None]
  - Extra dose administered [None]
  - Cellulitis [None]
  - Drug dose omission [None]
